FAERS Safety Report 16019152 (Version 3)
Quarter: 2019Q2

REPORT INFORMATION
  Report Type: Spontaneous
  Country: US (occurrence: US)
  Receive Date: 20190228
  Receipt Date: 20190415
  Transmission Date: 20190711
  Serious: No
  Sender: FDA-Public Use
  Company Number: US-TEVA-2019-US-1006941

PATIENT
  Sex: Male

DRUGS (1)
  1. BUPRENORPHINE SUBLINGUAL TABLETS TEVA [Suspect]
     Active Substance: BUPRENORPHINE
     Dosage: FORM STRENGTH: 2, UNIT NOT PROVIDED
     Route: 060

REACTIONS (2)
  - Constipation [Unknown]
  - Product substitution issue [Unknown]
